FAERS Safety Report 6248271-3 (Version None)
Quarter: 2009Q2

REPORT INFORMATION
  Report Type: 
  Country: None (occurrence: None)
  Receive Date: 20090626
  Receipt Date: 20090626
  Transmission Date: 20091009
  Serious: Yes (Other)
  Sender: FDA-Public Use
  Company Number: None

PATIENT
  Sex: Female
  Weight: 79.8 kg

DRUGS (1)
  1. TOPIRAMATE [Suspect]
     Indication: EPILEPSY
     Dosage: 100 MG 1 BID PO
     Route: 048
     Dates: start: 20090601

REACTIONS (5)
  - APHASIA [None]
  - CONDITION AGGRAVATED [None]
  - CONVULSION [None]
  - LOSS OF CONSCIOUSNESS [None]
  - PARAESTHESIA [None]
